FAERS Safety Report 19288972 (Version 2)
Quarter: 2021Q2

REPORT INFORMATION
  Report Type: Report from Study
  Country: BR (occurrence: BR)
  Receive Date: 20210521
  Receipt Date: 20210608
  Transmission Date: 20210717
  Serious: Yes (Other)
  Sender: FDA-Public Use
  Company Number: PHHY2019BR178756

PATIENT
  Age: 71 Year
  Sex: Female
  Weight: 69 kg

DRUGS (5)
  1. EXFORGE HCT [Suspect]
     Active Substance: AMLODIPINE BESYLATE\HYDROCHLOROTHIAZIDE\VALSARTAN
     Indication: HYPERTENSION
     Dosage: 0.5 DF, QD (320MG +25MG + 10MG)
     Route: 048
     Dates: start: 2019
  2. COSENTYX [Suspect]
     Active Substance: SECUKINUMAB
     Indication: PSORIASIS
     Dosage: UNK
     Route: 065
     Dates: start: 20190328
  3. COSENTYX [Suspect]
     Active Substance: SECUKINUMAB
     Dosage: UNK
     Route: 065
     Dates: start: 20190724, end: 2019
  4. COSENTYX [Suspect]
     Active Substance: SECUKINUMAB
     Dosage: 150 MG (2 INJECTIONS), QW (WEEKLY APPLICATIONS FOR 5 WEEKS)
     Route: 058
     Dates: start: 20210520
  5. COSENTYX [Suspect]
     Active Substance: SECUKINUMAB
     Indication: PSORIATIC ARTHROPATHY
     Dosage: 150 MG, QMO (2 INJECTIONS)
     Route: 058
     Dates: start: 201902

REACTIONS (25)
  - Blood pressure decreased [Unknown]
  - Alopecia [Recovered/Resolved]
  - Arthritis [Recovering/Resolving]
  - Drug hypersensitivity [Recovered/Resolved]
  - Abdominal pain upper [Recovered/Resolved]
  - Eating disorder [Recovered/Resolved]
  - Pruritus [Unknown]
  - Throat irritation [Unknown]
  - Headache [Recovered/Resolved]
  - Blood glucose increased [Recovered/Resolved]
  - Product availability issue [Unknown]
  - Drug ineffective [Not Recovered/Not Resolved]
  - Diabetes mellitus [Unknown]
  - Blood glucose increased [Unknown]
  - Skin fissures [Unknown]
  - Skin haemorrhage [Unknown]
  - Psoriasis [Recovered/Resolved]
  - Oropharyngeal pain [Not Recovered/Not Resolved]
  - Wound [Recovered/Resolved]
  - Dry skin [Unknown]
  - Wrong technique in product usage process [Unknown]
  - Hypersensitivity [Recovered/Resolved]
  - Pain [Not Recovered/Not Resolved]
  - Weight decreased [Recovered/Resolved]
  - Headache [Recovered/Resolved]

NARRATIVE: CASE EVENT DATE: 2019
